FAERS Safety Report 10100659 (Version 1)
Quarter: 2014Q2

REPORT INFORMATION
  Report Type: Spontaneous
  Country: KR (occurrence: KR)
  Receive Date: 20140423
  Receipt Date: 20140423
  Transmission Date: 20141212
  Serious: Yes (Hospitalization)
  Sender: FDA-Public Use
  Company Number: PHHY2014KR046568

PATIENT
  Age: 76 Year
  Sex: Female

DRUGS (4)
  1. OXALIPLATIN [Suspect]
     Indication: METASTASES TO LIVER
  2. LEUCOVORIN CALCIUM [Suspect]
     Indication: METASTASES TO LIVER
  3. 5-FLUOROURACIL [Suspect]
     Indication: METASTASES TO LIVER
  4. WARFARIN [Concomitant]
     Indication: ANTICOAGULANT THERAPY

REACTIONS (6)
  - Sarcoidosis [Unknown]
  - Dyspnoea [Recovering/Resolving]
  - Rales [Unknown]
  - Hypoxia [Unknown]
  - Angiotensin converting enzyme increased [Unknown]
  - Pulmonary embolism [Unknown]
